FAERS Safety Report 9037166 (Version 2)
Quarter: 2013Q2

REPORT INFORMATION
  Report Type: Spontaneous
  Country: US (occurrence: None)
  Receive Date: 20120525
  Receipt Date: 20120827
  Transmission Date: 20140414
  Serious: Yes (Other)
  Sender: FDA-Public Use
  Company Number: 350174

PATIENT
  Age: 85 Year
  Sex: Male

DRUGS (6)
  1. VICTOZA (LIRAGLUTIDE) SOLUTION FOR INJECTION, 6 MG/ML [Suspect]
     Indication: TYPE 2 DIABETES MELLITUS
     Route: 058
  2. GLIMEPIRIDE (GLIMEPIRIDE) [Concomitant]
  3. GLUCOSAMINE (GLUCOSAMINE) [Concomitant]
  4. METFORMIN (METFORMIN) [Concomitant]
  5. PLAVIX (CLOPIDOGREL BISULFATE) [Concomitant]
  6. FLUSH FREE NIACIN (INOSITOL NICOTINATE) [Concomitant]

REACTIONS (3)
  - Weight decreased [None]
  - Decreased appetite [None]
  - Dyspepsia [None]
